FAERS Safety Report 9984694 (Version 1)
Quarter: 2014Q1

REPORT INFORMATION
  Report Type: Spontaneous
  Country: US (occurrence: US)
  Receive Date: 20140307
  Receipt Date: 20140307
  Transmission Date: 20141002
  Serious: No
  Sender: FDA-Public Use
  Company Number: US-GLAXOSMITHKLINE-A1059660A

PATIENT
  Age: 78 Year
  Sex: Male
  Weight: 74.1 kg

DRUGS (1)
  1. BREO ELLIPTA [Suspect]
     Indication: CHRONIC OBSTRUCTIVE PULMONARY DISEASE
     Dosage: 1PUFF PER DAY
     Route: 055
     Dates: start: 20140121

REACTIONS (2)
  - Dizziness [Recovered/Resolved]
  - Chest discomfort [Recovered/Resolved]
